FAERS Safety Report 22153260 (Version 1)
Quarter: 2023Q1

REPORT INFORMATION
  Report Type: Spontaneous
  Country: JP (occurrence: JP)
  Receive Date: 20230329
  Receipt Date: 20230329
  Transmission Date: 20230417
  Serious: Yes (Other)
  Sender: FDA-Public Use
  Company Number: JP-MSD-M2023-12172

PATIENT
  Age: 77 Year
  Sex: Male

DRUGS (1)
  1. KEYTRUDA [Suspect]
     Active Substance: PEMBROLIZUMAB
     Indication: Transitional cell carcinoma
     Dosage: 200 MILLIGRAM, Q3W
     Route: 041

REACTIONS (5)
  - Malignant neoplasm progression [Unknown]
  - Pneumonitis [Unknown]
  - Pneumonitis [Unknown]
  - Pneumocystis jirovecii pneumonia [Unknown]
  - Eastern Cooperative Oncology Group performance status worsened [Unknown]
